FAERS Safety Report 20029814 (Version 1)
Quarter: 2021Q4

REPORT INFORMATION
  Report Type: Spontaneous
  Country: US (occurrence: US)
  Receive Date: 20211103
  Receipt Date: 20211103
  Transmission Date: 20220304
  Serious: Yes (Other)
  Sender: FDA-Public Use
  Company Number: US-GLAXOSMITHKLINE-US2021GSK227123

PATIENT
  Sex: Female

DRUGS (5)
  1. ZANTAC [Suspect]
     Active Substance: RANITIDINE HYDROCHLORIDE
     Indication: Burning sensation
     Dosage: UNK, QD
     Route: 065
     Dates: start: 198801, end: 201412
  2. ZANTAC [Suspect]
     Active Substance: RANITIDINE HYDROCHLORIDE
     Indication: Burning sensation
     Dosage: UNK, QD
     Route: 065
     Dates: start: 198801, end: 201412
  3. ZANTAC [Suspect]
     Active Substance: RANITIDINE HYDROCHLORIDE
     Indication: Burning sensation
     Dosage: UNK, QD
     Route: 065
     Dates: start: 198801, end: 201412
  4. RANITIDINE [Suspect]
     Active Substance: RANITIDINE
     Indication: Burning sensation
     Dosage: 40 MG|OVER THE COUNTER
     Route: 065
     Dates: start: 198801, end: 201412
  5. RANITIDINE [Suspect]
     Active Substance: RANITIDINE
     Indication: Burning sensation
     Dosage: UNK, QD
     Route: 065
     Dates: start: 198801, end: 201412

REACTIONS (1)
  - Breast cancer [Unknown]
